FAERS Safety Report 4428249-2 (Version None)
Quarter: 2004Q3

REPORT INFORMATION
  Report Type: 
  Country: None (occurrence: None)
  Receive Date: 20040813
  Receipt Date: 20040802
  Transmission Date: 20050211
  Serious: Yes (Other)
  Sender: FDA-Public Use
  Company Number: 8599

PATIENT
  Sex: Male

DRUGS (3)
  1. LEUCOVORIN [Suspect]
     Indication: COLON CANCER
     Dosage: 1000 MG  IV
     Route: 042
  2. LEUCOVORIN [Suspect]
     Indication: METASTASES TO LIVER
     Dosage: 1000 MG  IV
     Route: 042
  3. ELOXATIN [Concomitant]

REACTIONS (1)
  - FLANK PAIN [None]
